FAERS Safety Report 17986749 (Version 1)
Quarter: 2020Q3

REPORT INFORMATION
  Report Type: Report from Study
  Country: None (occurrence: US)
  Receive Date: 20200707
  Receipt Date: 20200707
  Transmission Date: 20201103
  Serious: Yes (Hospitalization, Other)
  Sender: FDA-Public Use
  Company Number: US-ABBVIE-20K-163-3434893-00

PATIENT
  Age: 66 Year
  Sex: Male

DRUGS (3)
  1. PREDNISONE. [Concomitant]
     Active Substance: PREDNISONE
     Indication: PRODUCT USED FOR UNKNOWN INDICATION
     Dosage: LOW DOSE
  2. HUMIRA [Suspect]
     Active Substance: ADALIMUMAB
     Indication: COLITIS ULCERATIVE
     Dosage: DAY 1
     Route: 058
     Dates: start: 20200522, end: 20200522
  3. HUMIRA [Suspect]
     Active Substance: ADALIMUMAB
     Indication: COLITIS ULCERATIVE
     Route: 058
     Dates: start: 20200620

REACTIONS (33)
  - Abdominal pain upper [Recovering/Resolving]
  - Peripheral swelling [Not Recovered/Not Resolved]
  - Blood glucose increased [Unknown]
  - Decreased appetite [Recovered/Resolved]
  - Loss of personal independence in daily activities [Unknown]
  - Defaecation urgency [Not Recovered/Not Resolved]
  - Impaired healing [Not Recovered/Not Resolved]
  - Fear of eating [Unknown]
  - Confusional state [Unknown]
  - Abnormal faeces [Unknown]
  - Fatigue [Not Recovered/Not Resolved]
  - Unevaluable event [Not Recovered/Not Resolved]
  - Pyrexia [Not Recovered/Not Resolved]
  - Diarrhoea [Unknown]
  - Macular oedema [Unknown]
  - Diarrhoea [Not Recovered/Not Resolved]
  - Heart rate abnormal [Unknown]
  - Dyspnoea [Unknown]
  - Anal incontinence [Unknown]
  - Dizziness [Not Recovered/Not Resolved]
  - Nasopharyngitis [Unknown]
  - Clostridium difficile infection [Unknown]
  - Vision blurred [Unknown]
  - Eye pain [Unknown]
  - Weight decreased [Not Recovered/Not Resolved]
  - Gastrointestinal sounds abnormal [Not Recovered/Not Resolved]
  - Rectal haemorrhage [Not Recovered/Not Resolved]
  - Therapeutic product effect decreased [Not Recovered/Not Resolved]
  - Chest discomfort [Unknown]
  - Swelling face [Not Recovered/Not Resolved]
  - Hypotension [Unknown]
  - Depressed mood [Unknown]
  - Joint injury [Not Recovered/Not Resolved]

NARRATIVE: CASE EVENT DATE: 2020
